FAERS Safety Report 16935442 (Version 5)
Quarter: 2020Q4

REPORT INFORMATION
  Report Type: Spontaneous
  Country: US (occurrence: US)
  Receive Date: 20191018
  Receipt Date: 20201214
  Transmission Date: 20210113
  Serious: Yes (Other)
  Sender: FDA-Public Use
  Company Number: US-SA-2019SA245157

PATIENT

DRUGS (4)
  1. VITAMIN C [Concomitant]
     Active Substance: ASCORBIC ACID
  2. DUPIXENT [Suspect]
     Active Substance: DUPILUMAB
     Indication: DERMATITIS ATOPIC
     Dosage: 300 MG, QOW
     Route: 058
     Dates: start: 20190703
  3. CENTRUM FOR WOMEN [Concomitant]
     Active Substance: VITAMINS
  4. ACITRETIN. [Concomitant]
     Active Substance: ACITRETIN
     Indication: PRURITUS
     Dosage: UNK

REACTIONS (3)
  - Lung neoplasm malignant [Unknown]
  - Urinary tract infection [Unknown]
  - Bladder mass [Unknown]

NARRATIVE: CASE EVENT DATE: 20190729
